FAERS Safety Report 15127122 (Version 1)
Quarter: 2018Q3

REPORT INFORMATION
  Report Type: Spontaneous
  Country: US (occurrence: US)
  Receive Date: 20180614
  Receipt Date: 20180614
  Transmission Date: 20181010
  Serious: Yes (Hospitalization)
  Sender: FDA-Public Use
  Company Number: None

PATIENT
  Sex: Male

DRUGS (22)
  1. TOBRAMYCIN. [Suspect]
     Active Substance: TOBRAMYCIN
     Indication: CYSTIC FIBROSIS
     Dosage: ?          OTHER FREQUENCY:ONE VIAL QD;?
     Route: 055
     Dates: start: 20130312
  2. RANITIDINE. [Concomitant]
     Active Substance: RANITIDINE
  3. TRINMCINOLON [Concomitant]
  4. CEFDINIR. [Concomitant]
     Active Substance: CEFDINIR
  5. PRENISOLONE [Concomitant]
     Active Substance: PREDNISOLONE
  6. CEPHALEXIN. [Concomitant]
     Active Substance: CEPHALEXIN
  7. AZITHROMYCIN ANHYDROUS. [Concomitant]
     Active Substance: AZITHROMYCIN ANHYDROUS
  8. HYDROCO/APAP [Concomitant]
     Active Substance: ACETAMINOPHEN\HYDROCODONE
  9. LOPERAMIDE [Concomitant]
     Active Substance: LOPERAMIDE
  10. K CITRATE [Concomitant]
  11. ALBENZA [Concomitant]
     Active Substance: ALBENDAZOLE
  12. PERMETHRIN. [Concomitant]
     Active Substance: PERMETHRIN
  13. CIPROFLOXACN [Concomitant]
     Active Substance: CIPROFLOXACIN
  14. VITAMIN D3 [Concomitant]
     Active Substance: CHOLECALCIFEROL
  15. SSC CRE [Concomitant]
  16. LORARADINE [Concomitant]
  17. CEFDINIR. [Concomitant]
     Active Substance: CEFDINIR
  18. PULMICORT TURBUHALER [Concomitant]
     Active Substance: BUDESONIDE
  19. SMZ?TMP [Concomitant]
     Active Substance: SULFAMETHOXAZOLE\TRIMETHOPRIM
  20. NSTOP [Concomitant]
  21. PULMOZYME [Concomitant]
     Active Substance: DORNASE ALFA
  22. ALBUTEROL. [Concomitant]
     Active Substance: ALBUTEROL

REACTIONS (2)
  - Lung disorder [None]
  - Respiration abnormal [None]
